FAERS Safety Report 12820901 (Version 3)
Quarter: 2017Q2

REPORT INFORMATION
  Report Type: Spontaneous
  Country: US (occurrence: US)
  Receive Date: 20161006
  Receipt Date: 20170502
  Transmission Date: 20170830
  Serious: No
  Sender: FDA-Public Use
  Company Number: US-IMPAX LABORATORIES, INC-2016-IPXL-01054

PATIENT
  Sex: Female
  Weight: 75 kg

DRUGS (3)
  1. RYTARY [Suspect]
     Active Substance: CARBIDOPA\LEVODOPA
     Indication: PARKINSON^S DISEASE
     Dosage: (48.75/195) MG EVERY FOUR HOURS
     Route: 048
  2. SINEMET [Concomitant]
     Active Substance: CARBIDOPA\LEVODOPA
     Indication: PARKINSON^S DISEASE
     Dosage: HALF 2500; UNK
     Route: 065
     Dates: start: 2016
  3. RYTARY [Suspect]
     Active Substance: CARBIDOPA\LEVODOPA
     Dosage: (36.25/145 MG), THREE CAPSULES AT A TIME, FOUR TIMES A DAY
     Route: 048
     Dates: start: 201608, end: 2016

REACTIONS (12)
  - Arthralgia [Recovered/Resolved]
  - Nightmare [Recovered/Resolved]
  - Condition aggravated [Recovered/Resolved]
  - Drug ineffective [Unknown]
  - Feeling abnormal [Recovered/Resolved]
  - Therapeutic response unexpected [Unknown]
  - Tremor [Recovered/Resolved]
  - Fatigue [Recovered/Resolved]
  - Mental disorder [Recovered/Resolved]
  - Thinking abnormal [Recovered/Resolved]
  - Movement disorder [Recovered/Resolved]
  - Pain [Recovered/Resolved]

NARRATIVE: CASE EVENT DATE: 2016
